FAERS Safety Report 17805680 (Version 1)
Quarter: 2020Q2

REPORT INFORMATION
  Report Type: Spontaneous
  Country: US (occurrence: US)
  Receive Date: 20200519
  Receipt Date: 20200519
  Transmission Date: 20200714
  Serious: No
  Sender: FDA-Public Use
  Company Number: US-ALVOGEN-2020-ALVOGEN-108221

PATIENT
  Age: 34 Year
  Sex: Male

DRUGS (1)
  1. GRALISE [Suspect]
     Active Substance: GABAPENTIN
     Indication: PRODUCT USED FOR UNKNOWN INDICATION
     Dosage: 1 TABLET WITH EVENING MEAL FOR 5 DAYS, 2 TABLETS FOR 5 DAYS, AND 3 TABLETS WITH EVENING MEAL
     Route: 048

REACTIONS (1)
  - Agitation [Unknown]
